FAERS Safety Report 6309167-1 (Version None)
Quarter: 2009Q3

REPORT INFORMATION
  Report Type: 
  Country: None (occurrence: None)
  Receive Date: 20090814
  Receipt Date: 20090528
  Transmission Date: 20100115
  Serious: No
  Sender: FDA-Public Use
  Company Number: A0787117A

PATIENT
  Age: 80 Year
  Sex: Male

DRUGS (6)
  1. COREG CR [Suspect]
     Dosage: 60MG PER DAY
     Route: 048
  2. COREG [Suspect]
     Dosage: 10MG TWICE PER DAY
     Route: 048
  3. ZOLOFT [Concomitant]
  4. PLAVIX [Concomitant]
  5. BUSPAR [Concomitant]
  6. ACCUPRIL [Concomitant]

REACTIONS (4)
  - CONJUNCTIVITIS [None]
  - FALL [None]
  - FATIGUE [None]
  - HAEMATOMA [None]
